FAERS Safety Report 6180206-4 (Version None)
Quarter: 2009Q2

REPORT INFORMATION
  Report Type: 
  Country: None (occurrence: None)
  Receive Date: 20090505
  Receipt Date: 20090501
  Transmission Date: 20091009
  Serious: Yes (Hospitalization)
  Sender: FDA-Public Use
  Company Number: FR-RB-014950-09

PATIENT
  Sex: Male

DRUGS (1)
  1. SUBUTEX [Suspect]
     Dosage: DOSING INFORMATION UNKNOWN
     Route: 042

REACTIONS (2)
  - DELUSION [None]
  - INTENTIONAL DRUG MISUSE [None]
